FAERS Safety Report 7687316-0 (Version None)
Quarter: 2011Q3

REPORT INFORMATION
  Report Type: 
  Country: None (occurrence: None)
  Receive Date: 20110816
  Receipt Date: 20110803
  Transmission Date: 20111222
  Serious: Yes (Other)
  Sender: FDA-Public Use
  Company Number: US-MYLANLABS-2011S1005271

PATIENT
  Age: 56 Year
  Sex: Male

DRUGS (1)
  1. FINASTERIDE [Suspect]
     Dosage: 1 MG/DAY
     Route: 065

REACTIONS (1)
  - PSEUDOPORPHYRIA [None]
